FAERS Safety Report 6619328-X (Version None)
Quarter: 2010Q1

REPORT INFORMATION
  Report Type: 
  Country: None (occurrence: None)
  Receive Date: 20100308
  Receipt Date: 20100301
  Transmission Date: 20100710
  Serious: Yes (Hospitalization, Other)
  Sender: FDA-Public Use
  Company Number: JP-BRISTOL-MYERS SQUIBB COMPANY-14751986

PATIENT
  Age: 56 Year
  Sex: Male
  Weight: 93 kg

DRUGS (6)
  1. SAXAGLIPTIN [Suspect]
     Indication: TYPE 2 DIABETES MELLITUS
     Dosage: 1DF=1 TABLET;02MAY-21JUL09(11WKS 4 DAYS) 1MG,2.5MG,5MG FOR 12 WEEKS
     Route: 048
     Dates: start: 20090418, end: 20090721
  2. CIPROFLOXACIN [Suspect]
     Dosage: IV DRIP: 300MG/D; 03AUG09-04AUG09;LESS THAN 1MONTH
     Route: 051
     Dates: start: 20090803, end: 20090804
  3. DIOVAN [Concomitant]
     Dosage: 29AUG07-AUG09;AUG09-ONG;DUR:2 YRS
     Dates: start: 20070829
  4. NORVASC [Concomitant]
     Dosage: 29AUG07-AUG09;AUG09-ONG;DUR:2 YRS
     Dates: start: 20070829
  5. HARNAL [Concomitant]
     Indication: BENIGN PROSTATIC HYPERPLASIA
     Dates: start: 20090803
  6. MEROPENEM [Concomitant]
     Dosage: INJ FORM
     Dates: start: 20090804, end: 20090809

REACTIONS (3)
  - RHABDOMYOLYSIS [None]
  - SEPSIS [None]
  - URINARY TRACT INFECTION [None]
